FAERS Safety Report 4319316-2 (Version None)
Quarter: 2004Q1

REPORT INFORMATION
  Report Type: 
  Country: None (occurrence: None)
  Receive Date: 20040318
  Receipt Date: 20040318
  Transmission Date: 20041129
  Serious: Yes (Hospitalization)
  Sender: FDA-Public Use
  Company Number: None

PATIENT
  Sex: Female
  Weight: 83 kg

DRUGS (10)
  1. DOXORUBICIN HCL [Suspect]
     Indication: ENDOMETRIAL CANCER
     Dosage: 40MG/M2 EVERY 4 WEEKS INTRAVENOUS
     Route: 042
     Dates: start: 19981118, end: 19981216
  2. DECADRON [Concomitant]
  3. TEMORIN [Concomitant]
  4. PEPCID [Concomitant]
  5. COLACE [Concomitant]
  6. DYAZIDE [Concomitant]
  7. MOM [Concomitant]
  8. REGLAN [Concomitant]
  9. CHLOROPHYLL [Concomitant]
  10. DULCOLAX [Concomitant]

REACTIONS (7)
  - DEPRESSION [None]
  - DIARRHOEA [None]
  - FAECAL INCONTINENCE [None]
  - PAIN [None]
  - RECTAL HAEMORRHAGE [None]
  - URINARY INCONTINENCE [None]
  - VAGINAL HAEMORRHAGE [None]
